FAERS Safety Report 13477645 (Version 1)
Quarter: 2017Q2

REPORT INFORMATION
  Report Type: Spontaneous
  Country: CN (occurrence: CN)
  Receive Date: 20170425
  Receipt Date: 20170425
  Transmission Date: 20170830
  Serious: Yes (Hospitalization)
  Sender: FDA-Public Use
  Company Number: CN-ASTRAZENECA-2017SE41818

PATIENT
  Age: 19359 Day
  Sex: Female
  Weight: 49 kg

DRUGS (2)
  1. ROSUVASTATIN CALCIUM. [Suspect]
     Active Substance: ROSUVASTATIN CALCIUM
     Indication: LIPIDS ABNORMAL
     Route: 048
     Dates: start: 20160718, end: 20161118
  2. NATEGLINIDE. [Concomitant]
     Active Substance: NATEGLINIDE
     Indication: HYPERGLYCAEMIA
     Route: 048
     Dates: start: 20160718, end: 20161118

REACTIONS (7)
  - Aspartate aminotransferase increased [Recovering/Resolving]
  - Blood bilirubin increased [Recovering/Resolving]
  - Alanine aminotransferase increased [Recovering/Resolving]
  - Decreased appetite [Unknown]
  - Bilirubin conjugated increased [Recovering/Resolving]
  - Drug-induced liver injury [Unknown]
  - Ocular icterus [Unknown]

NARRATIVE: CASE EVENT DATE: 20161117
